FAERS Safety Report 11771902 (Version 1)
Quarter: 2015Q4

REPORT INFORMATION
  Report Type: Spontaneous
  Country: US (occurrence: None)
  Receive Date: 20151123
  Receipt Date: 20151123
  Transmission Date: 20160304
  Serious: No
  Sender: FDA-Public Use
  Company Number: None

PATIENT
  Age: 68 Year
  Sex: Female
  Weight: 54.43 kg

DRUGS (4)
  1. CIPROFLOXACIN HCL 500 MG WEST-WARD [Suspect]
     Active Substance: CIPROFLOXACIN HYDROCHLORIDE
     Indication: URINARY TRACT INFECTION
     Dosage: 7 DAYS
     Route: 048
     Dates: start: 20151104, end: 20151110
  2. ESCITALOPRAM OXALATE. [Concomitant]
     Active Substance: ESCITALOPRAM OXALATE
  3. D3 [Concomitant]
     Active Substance: 25-HYDROXYCHOLECALCIFEROL, 5-TRANS-
  4. BAYER ASPERIN [Concomitant]

REACTIONS (5)
  - Palpitations [None]
  - Suicidal ideation [None]
  - Depression [None]
  - Asthenia [None]
  - Decreased interest [None]

NARRATIVE: CASE EVENT DATE: 20151104
